FAERS Safety Report 18221634 (Version 4)
Quarter: 2020Q4

REPORT INFORMATION
  Report Type: Spontaneous
  Country: US (occurrence: US)
  Receive Date: 20200902
  Receipt Date: 20201208
  Transmission Date: 20210113
  Serious: Yes (Other)
  Sender: FDA-Public Use
  Company Number: US-PFIZER INC-2020339298

PATIENT
  Age: 70 Year
  Sex: Female

DRUGS (2)
  1. LYRICA [Suspect]
     Active Substance: PREGABALIN
     Indication: BACK PAIN
     Dosage: 75 MG, 3X/DAY
     Route: 048
  2. LYRICA [Suspect]
     Active Substance: PREGABALIN
     Dosage: 100 MG (TWO 50 MG CAPSLE), DAILY

REACTIONS (9)
  - Hallucination [Unknown]
  - Fine motor skill dysfunction [Unknown]
  - Intracranial aneurysm [Unknown]
  - Balance disorder [Unknown]
  - Neuropathy peripheral [Unknown]
  - Fall [Unknown]
  - Disturbance in attention [Unknown]
  - Feeling abnormal [Unknown]
  - Dizziness [Unknown]
